FAERS Safety Report 5448364-4 (Version None)
Quarter: 2007Q3

REPORT INFORMATION
  Report Type: 
  Country: None (occurrence: None)
  Receive Date: 20070906
  Receipt Date: 20070820
  Transmission Date: 20080115
  Serious: Yes (Hospitalization)
  Sender: FDA-Public Use
  Company Number: DSU-2007-00519

PATIENT
  Age: 77 Year
  Sex: Female
  Weight: 49.8957 kg

DRUGS (3)
  1. BENICAR HCT [Suspect]
     Indication: HYPERTENSION
     Dosage: 40/25 MG (1 IN 1 D),PER ORAL ; 20/12.5 MG (1 IN 1 D),PER ORAL
     Route: 048
     Dates: end: 20070801
  2. BENICAR HCT [Suspect]
     Indication: HYPERTENSION
     Dosage: 40/25 MG (1 IN 1 D),PER ORAL ; 20/12.5 MG (1 IN 1 D),PER ORAL
     Route: 048
     Dates: start: 20070801, end: 20070817
  3. IMODIUM [Concomitant]

REACTIONS (6)
  - COELIAC DISEASE [None]
  - COLITIS [None]
  - DIARRHOEA [None]
  - HYPOTENSION [None]
  - STRESS [None]
  - VOMITING [None]
